FAERS Safety Report 7141860-3 (Version None)
Quarter: 2010Q4

REPORT INFORMATION
  Report Type: 
  Country: None (occurrence: None)
  Receive Date: 20101207
  Receipt Date: 20101122
  Transmission Date: 20110411
  Serious: No
  Sender: FDA-Public Use
  Company Number: US-ROXANE LABORATORIES, INC.-2010-RO-01450RO

PATIENT
  Sex: Female

DRUGS (3)
  1. LITHIUM CARBONATE [Suspect]
     Indication: DEPRESSION
     Dosage: 300 MG
     Route: 048
     Dates: start: 20101028, end: 20101030
  2. ZYRTEC [Concomitant]
     Indication: SEASONAL ALLERGY
  3. FLONASE [Concomitant]
     Indication: SEASONAL ALLERGY

REACTIONS (1)
  - DYSGEUSIA [None]
